FAERS Safety Report 6742356-0 (Version None)
Quarter: 2010Q2

REPORT INFORMATION
  Report Type: 
  Country: None (occurrence: None)
  Receive Date: 20100524
  Receipt Date: 20100511
  Transmission Date: 20101027
  Serious: Yes (Hospitalization)
  Sender: FDA-Public Use
  Company Number: 011260

PATIENT
  Sex: Female
  Weight: 80 kg

DRUGS (2)
  1. CERTOLIZUMAB PEGOL (CERTOLIZUMAB PEGOL) [Suspect]
     Indication: RHEUMATOID ARTHRITIS
     Dosage: 400 MG, ONCE SUBCUTANEOUS
     Route: 058
     Dates: start: 20100412, end: 20100412
  2. PREDNISOLONE [Concomitant]

REACTIONS (4)
  - ARTHRALGIA [None]
  - JOINT SWELLING [None]
  - SJOGREN'S SYNDROME [None]
  - SYNOVIAL CYST [None]
